FAERS Safety Report 9307275 (Version 1)
Quarter: 2013Q2

REPORT INFORMATION
  Report Type: Spontaneous
  Country: GB (occurrence: GB)
  Receive Date: 20130524
  Receipt Date: 20130524
  Transmission Date: 20140414
  Serious: Yes (Death, Life-Threatening)
  Sender: FDA-Public Use
  Company Number: GB-ROCHE-1223893

PATIENT
  Age: 74 Year
  Sex: Female

DRUGS (11)
  1. RITUXIMAB [Suspect]
     Indication: RHEUMATOID ARTHRITIS
     Dosage: THE LAST INFUSION WAS MAY 2012, ONE INFUSION ONLY.
     Route: 042
     Dates: start: 20120524, end: 20120524
  2. ASPIRIN [Concomitant]
     Indication: MYOCARDIAL ISCHAEMIA
     Route: 048
  3. METHOTREXATE [Concomitant]
     Indication: RHEUMATOID ARTHRITIS
     Route: 065
  4. SOLPADOL [Concomitant]
     Indication: RHEUMATOID ARTHRITIS
  5. ROSUVASTATIN [Concomitant]
     Indication: MYOCARDIAL ISCHAEMIA
     Route: 048
  6. OMEPRAZOL [Concomitant]
  7. PANTOPRAZOL [Concomitant]
  8. SELECTIN [Concomitant]
  9. CLOPIDOGREL [Concomitant]
  10. PERINDOPRIL [Concomitant]
  11. NICORANDIL [Concomitant]
     Route: 065

REACTIONS (6)
  - Intestinal perforation [Fatal]
  - Multi-organ failure [Fatal]
  - Colitis ischaemic [Fatal]
  - Colitis [Unknown]
  - Respiratory failure [Recovering/Resolving]
  - Pulmonary oedema [Recovering/Resolving]
